FAERS Safety Report 8077640-4 (Version None)
Quarter: 2012Q1

REPORT INFORMATION
  Report Type: 
  Country: None (occurrence: None)
  Receive Date: 20120123
  Receipt Date: 20120109
  Transmission Date: 20120608
  Serious: Yes (Death)
  Sender: FDA-Public Use
  Company Number: JPI-P-015059

PATIENT
  Age: 42 Year
  Sex: Female

DRUGS (3)
  1. XYREM [Suspect]
     Indication: PRODUCT USED FOR UNKNOWN INDICATION
     Dosage: 4.5 GM (2.25 GM,2 IN 1 D),ORAL ; (UNSPECIFIED DOSE CHANGE),ORAL ; 9 GM (4.5 GM,2 IN 1 D),ORAL
     Route: 048
     Dates: start: 20040920
  2. XYREM [Suspect]
     Indication: PRODUCT USED FOR UNKNOWN INDICATION
     Dosage: 4.5 GM (2.25 GM,2 IN 1 D),ORAL ; (UNSPECIFIED DOSE CHANGE),ORAL ; 9 GM (4.5 GM,2 IN 1 D),ORAL
     Route: 048
     Dates: start: 20050118, end: 20060610
  3. UNSPECIFIED DRUGS, MEDICAMENTS, AND BIOLOGICAL SUBSTANCES [Suspect]
     Indication: PRODUCT USED FOR UNKNOWN INDICATION
     Dates: end: 20060610

REACTIONS (2)
  - ACCIDENTAL POISONING [None]
  - CARDIAC ARREST [None]
